FAERS Safety Report 5676101-7 (Version None)
Quarter: 2008Q1

REPORT INFORMATION
  Report Type: 
  Country: None (occurrence: None)
  Receive Date: 20080321
  Receipt Date: 20080312
  Transmission Date: 20080703
  Serious: Yes (Hospitalization)
  Sender: FDA-Public Use
  Company Number: GB-BAYER-200810691BNE

PATIENT
  Sex: Female

DRUGS (1)
  1. MABCAMPATH [Suspect]

REACTIONS (3)
  - BRONCHOPULMONARY ASPERGILLOSIS [None]
  - DYSPNOEA [None]
  - OXYGEN SATURATION DECREASED [None]
